FAERS Safety Report 5117912-6 (Version None)
Quarter: 2006Q3

REPORT INFORMATION
  Report Type: 
  Country: None (occurrence: None)
  Receive Date: 20060929
  Receipt Date: 20060919
  Transmission Date: 20061208
  Serious: Yes (Other)
  Sender: FDA-Public Use
  Company Number: PHEH2006US11995

PATIENT
  Age: 75 Year
  Sex: Male
  Weight: 71.655 kg

DRUGS (7)
  1. STARLIX [Suspect]
     Indication: DIABETES MELLITUS NON-INSULIN-DEPENDENT
     Dates: end: 20060201
  2. STARLIX [Suspect]
     Dates: start: 20060801
  3. BYETTA [Suspect]
     Indication: DIABETES MELLITUS NON-INSULIN-DEPENDENT
     Dosage: 5 MG, BID
     Route: 058
     Dates: start: 20051101, end: 20051201
  4. BYETTA [Suspect]
     Dosage: 10 MG, BID
     Route: 058
     Dates: start: 20051201
  5. BYETTA [Suspect]
     Dosage: 5 MG, BID
     Route: 058
     Dates: start: 20060201, end: 20060301
  6. BYETTA [Suspect]
     Dosage: 10 MG, BID
     Route: 058
     Dates: start: 20060301
  7. AVANDIA [Concomitant]
     Dates: start: 19960101

REACTIONS (11)
  - ANOREXIA [None]
  - ARRHYTHMIA [None]
  - BLOOD GLUCOSE DECREASED [None]
  - BLOOD GLUCOSE INCREASED [None]
  - ERUCTATION [None]
  - FATIGUE [None]
  - GLYCOSYLATED HAEMOGLOBIN INCREASED [None]
  - HEART RATE INCREASED [None]
  - TREMOR [None]
  - VOMITING [None]
  - WEIGHT DECREASED [None]
